FAERS Safety Report 5205135-1 (Version None)
Quarter: 2007Q1

REPORT INFORMATION
  Report Type: 
  Country: None (occurrence: None)
  Receive Date: 20070108
  Receipt Date: 20061222
  Transmission Date: 20070707
  Serious: Yes (Hospitalization)
  Sender: FDA-Public Use
  Company Number: DSA_29175_2006

PATIENT
  Age: 69 Year
  Sex: Male

DRUGS (6)
  1. TAVOR   /00273201/ [Suspect]
     Dosage: 1 TAB ONCE PO
     Route: 048
     Dates: start: 20061221, end: 20061221
  2. IZOFRAN /00955301/ [Suspect]
     Dosage: 1 TAB ONCE PO
     Route: 048
     Dates: start: 20061221, end: 20061221
  3. CARBAMAZEPINE [Suspect]
     Dosage: DF Q DAY PO
     Route: 048
  4. EDRONAX /01350601/ [Suspect]
     Dosage: DF Q DAY PO
     Route: 048
  5. LUMINAL /00023201/ [Suspect]
     Dosage: DF PO
     Route: 048
  6. ZOLOFT [Suspect]
     Dosage: DF PO
     Route: 048

REACTIONS (2)
  - ATRIAL FIBRILLATION [None]
  - CONFUSIONAL STATE [None]
